FAERS Safety Report 16074288 (Version 3)
Quarter: 2019Q2

REPORT INFORMATION
  Report Type: Spontaneous
  Country: JP (occurrence: JP)
  Receive Date: 20190314
  Receipt Date: 20190531
  Transmission Date: 20190711
  Serious: Yes (Death)
  Sender: FDA-Public Use
  Company Number: JP-ALLERGAN-1910820US

PATIENT
  Sex: Female
  Weight: 37 kg

DRUGS (2)
  1. HEPARIN CALCIUM [Concomitant]
     Active Substance: HEPARIN CALCIUM
     Indication: THROMBOSIS PROPHYLAXIS
     Dosage: 5000 UNITS, SINGLE
     Route: 058
     Dates: start: 20190305, end: 20190305
  2. ASENAPINE MALEATE - BP [Suspect]
     Active Substance: ASENAPINE MALEATE
     Indication: SCHIZOPHRENIA
     Dosage: 5 MG
     Route: 060
     Dates: start: 20190305, end: 20190305

REACTIONS (1)
  - Haemoptysis [Fatal]
